FAERS Safety Report 17967465 (Version 5)
Quarter: 2020Q3

REPORT INFORMATION
  Report Type: Spontaneous
  Country: DE (occurrence: DE)
  Receive Date: 20200701
  Receipt Date: 20200902
  Transmission Date: 20201103
  Serious: Yes (Disabling, Other)
  Sender: FDA-Public Use
  Company Number: DE-REGENERON PHARMACEUTICALS, INC.-2020-47095

PATIENT

DRUGS (3)
  1. EYLEA [Suspect]
     Active Substance: AFLIBERCEPT
     Indication: NEOVASCULAR AGE-RELATED MACULAR DEGENERATION
     Dosage: TOTAL OF 25 DOSES PRIOR TO THE EVENT, INTO RIGHT EYE
     Route: 031
  2. EYLEA [Suspect]
     Active Substance: AFLIBERCEPT
     Dosage: 26TH INJECTION, RIGHT EYE
     Route: 031
     Dates: start: 20200512, end: 20200512
  3. EYLEA [Suspect]
     Active Substance: AFLIBERCEPT
     Dosage: 27TH INJECTION, RIGHT EYE
     Route: 031
     Dates: start: 20200617, end: 20200617

REACTIONS (4)
  - Ocular procedural complication [Unknown]
  - Visual impairment [Not Recovered/Not Resolved]
  - Wrong technique in product usage process [Unknown]
  - Visual impairment [Not Recovered/Not Resolved]

NARRATIVE: CASE EVENT DATE: 20200512
